FAERS Safety Report 8434123-7 (Version None)
Quarter: 2012Q2

REPORT INFORMATION
  Report Type: 
  Country: None (occurrence: None)
  Receive Date: 20120613
  Receipt Date: 20120606
  Transmission Date: 20120825
  Serious: Yes (Hospitalization)
  Sender: FDA-Public Use
  Company Number: GB-ABBOTT-12P-167-0943225-00

PATIENT
  Sex: Male
  Weight: 89.2 kg

DRUGS (1)
  1. HUMIRA [Suspect]
     Indication: PSORIASIS
     Route: 058
     Dates: start: 20110609

REACTIONS (4)
  - PERIPHERAL COLDNESS [None]
  - BLUE TOE SYNDROME [None]
  - PARAESTHESIA [None]
  - ANKLE FRACTURE [None]
